FAERS Safety Report 9954885 (Version 2)
Quarter: 2014Q1

REPORT INFORMATION
  Report Type: Report from Study
  Country: US (occurrence: US)
  Receive Date: 20140304
  Receipt Date: 20140304
  Transmission Date: 20141002
  Serious: No
  Sender: FDA-Public Use
  Company Number: US-ABBVIE-12P-163-1021504-00

PATIENT
  Age: 72 Year
  Sex: Female

DRUGS (7)
  1. HUMIRA [Suspect]
     Indication: RHEUMATOID ARTHRITIS
     Dates: start: 20121031
  2. ARAVA [Concomitant]
     Indication: ARTHRITIS
     Dosage: 20MG DAILY
  3. UNKNOWN MEDICATIONS [Concomitant]
     Indication: PRODUCT USED FOR UNKNOWN INDICATION
  4. ULTRAM [Concomitant]
     Indication: PAIN
  5. ULTRAM [Concomitant]
  6. ELAVIL [Concomitant]
     Indication: PAIN
     Dosage: AT BED TIME
  7. ELAVIL [Concomitant]
     Dosage: QHS

REACTIONS (2)
  - Local swelling [Not Recovered/Not Resolved]
  - Pain [Not Recovered/Not Resolved]
